FAERS Safety Report 7551774-2 (Version None)
Quarter: 2011Q2

REPORT INFORMATION
  Report Type: 
  Country: None (occurrence: None)
  Receive Date: 20110616
  Receipt Date: 20110610
  Transmission Date: 20111010
  Serious: Yes (Death)
  Sender: FDA-Public Use
  Company Number: B0713264A

PATIENT
  Sex: Male

DRUGS (10)
  1. PREDNISOLONE [Concomitant]
     Dosage: 30MG PER DAY
     Route: 048
     Dates: start: 20071231, end: 20080125
  2. ITRACONAZOLE [Concomitant]
     Dosage: 200MG PER DAY
     Route: 048
     Dates: start: 20080110, end: 20080201
  3. ALESION [Concomitant]
     Dosage: 20MG PER DAY
     Route: 048
     Dates: start: 20080110, end: 20080206
  4. ALKERAN [Suspect]
     Indication: CORD BLOOD TRANSPLANT THERAPY
     Dosage: 80MGM2 PER DAY
     Route: 042
     Dates: start: 20080122, end: 20080122
  5. ZOVIRAX [Concomitant]
     Dosage: 800MG PER DAY
     Route: 048
     Dates: start: 20080117, end: 20080201
  6. TACROLIMUS [Suspect]
     Indication: IMMUNOSUPPRESSION
     Dosage: .02MGK PER DAY
     Route: 065
     Dates: start: 20080123, end: 20080218
  7. SULFAMETHOXAZOLE [Concomitant]
     Dosage: 1IUAX PER DAY
     Route: 048
     Dates: start: 20080110, end: 20080123
  8. OMEPRAZOLE [Concomitant]
     Dosage: 20MG PER DAY
     Route: 048
     Dates: start: 20080110, end: 20080201
  9. FLUDARA [Suspect]
     Indication: CORD BLOOD TRANSPLANT THERAPY
     Dosage: 20MGM2 PER DAY
     Route: 042
     Dates: start: 20080117, end: 20080121
  10. URSO 250 [Concomitant]
     Dosage: 600MG PER DAY
     Route: 048
     Dates: start: 20080118, end: 20080218

REACTIONS (1)
  - PNEUMONIA [None]
